FAERS Safety Report 4588202-5 (Version None)
Quarter: 2005Q1

REPORT INFORMATION
  Report Type: 
  Country: None (occurrence: None)
  Receive Date: 20050221
  Receipt Date: 20050210
  Transmission Date: 20050727
  Serious: Yes (Other)
  Sender: FDA-Public Use
  Company Number: PL-GLAXOSMITHKLINE-B0372120A

PATIENT
  Sex: Female

DRUGS (1)
  1. FORTUM [Suspect]
     Dosage: 1G SINGLE DOSE
     Route: 042

REACTIONS (2)
  - BODY TEMPERATURE INCREASED [None]
  - CHILLS [None]
